FAERS Safety Report 4587165-6 (Version None)
Quarter: 2005Q1

REPORT INFORMATION
  Report Type: 
  Country: None (occurrence: None)
  Receive Date: 20050218
  Receipt Date: 20050208
  Transmission Date: 20050727
  Serious: Yes (Life-Threatening, Hospitalization)
  Sender: FDA-Public Use
  Company Number: JP-JNJFOC-20041008057

PATIENT
  Age: 22 Year
  Sex: Female

DRUGS (1)
  1. TAVANIC [Suspect]
     Indication: PYELONEPHRITIS
     Route: 049
     Dates: start: 20040119, end: 20040122

REACTIONS (4)
  - DEPRESSION SUICIDAL [None]
  - OVERDOSE [None]
  - PERSONALITY DISORDER [None]
  - SUICIDE ATTEMPT [None]
